FAERS Safety Report 7974715-2 (Version None)
Quarter: 2011Q4

REPORT INFORMATION
  Report Type: 
  Country: None (occurrence: None)
  Receive Date: 20111213
  Receipt Date: 20111206
  Transmission Date: 20120403
  Serious: Yes (Other)
  Sender: FDA-Public Use
  Company Number: PHEH2011US011046

PATIENT
  Age: 13 Year
  Sex: Female

DRUGS (1)
  1. FOCALIN XR [Suspect]
     Dosage: UNK UKN, UNK

REACTIONS (3)
  - SYNCOPE [None]
  - DIZZINESS [None]
  - ELECTROCARDIOGRAM ABNORMAL [None]
